FAERS Safety Report 8876719 (Version 4)
Quarter: 2012Q4

REPORT INFORMATION
  Report Type: 
  Country: US (occurrence: US)
  Receive Date: 20121023
  Receipt Date: 20121121
  Transmission Date: 20130627
  Serious: Yes (Life-Threatening, Hospitalization, Disabling, Other)
  Sender: FDA-Public Use
  Company Number: US-009507513-1210USA009755

PATIENT
  Age: 32 None
  Sex: Female
  Weight: 65.31 kg

DRUGS (6)
  1. SAPHRIS [Suspect]
     Indication: BIPOLAR I DISORDER
     Dosage: 5 mg, UNK
     Route: 060
     Dates: start: 20121017, end: 20121018
  2. VIIBRYD [Concomitant]
     Indication: BIPOLAR DISORDER
     Dosage: 40,UNK
     Route: 048
  3. XANAX [Concomitant]
     Indication: ANXIETY
     Dosage: 40,UNK
     Route: 048
  4. TRAZODONE HYDROCHLORIDE [Concomitant]
     Indication: INSOMNIA
     Dosage: 200 unk,UNK
     Route: 048
     Dates: start: 20120130
  5. OXCARBAZEPINE [Concomitant]
     Indication: BIPOLAR DISORDER
     Dosage: 900 UNK,UNK
     Route: 048
  6. VYVANSE [Concomitant]
     Indication: ATTENTION DEFICIT/HYPERACTIVITY DISORDER
     Dosage: 50 UNK,UNK
     Route: 048
     Dates: start: 20120130

REACTIONS (5)
  - Anaphylactic reaction [Recovered/Resolved]
  - Convulsion [Not Recovered/Not Resolved]
  - Pharyngeal oedema [Recovered/Resolved]
  - Grand mal convulsion [Recovered/Resolved]
  - Hypersensitivity [Recovered/Resolved]
